FAERS Safety Report 7141739-7 (Version None)
Quarter: 2010Q4

REPORT INFORMATION
  Report Type: 
  Country: None (occurrence: None)
  Receive Date: 20101207
  Receipt Date: 20101123
  Transmission Date: 20110411
  Serious: Yes (Hospitalization)
  Sender: FDA-Public Use
  Company Number: BR-MEDIMMUNE-MEDI-0011636

PATIENT
  Sex: Female
  Weight: 6.1 kg

DRUGS (5)
  1. SYNAGIS [Suspect]
     Indication: BRONCHOPULMONARY DYSPLASIA
     Route: 030
     Dates: start: 20100510, end: 20100809
  2. SYNAGIS [Suspect]
  3. TYLENOL-500 [Concomitant]
  4. SALINE [Concomitant]
     Route: 055
  5. MOTILIUM [Concomitant]

REACTIONS (4)
  - PNEUMONIA [None]
  - PYREXIA [None]
  - VIRAL INFECTION [None]
  - VOMITING [None]
